FAERS Safety Report 9112254 (Version 1)
Quarter: 2013Q1

REPORT INFORMATION
  Report Type: Spontaneous
  Country: US (occurrence: US)
  Receive Date: 20130219
  Receipt Date: 20130219
  Transmission Date: 20140127
  Serious: No
  Sender: FDA-Public Use
  Company Number: US-BRISTOL-MYERS SQUIBB COMPANY-16850695

PATIENT
  Age: 58 Year
  Sex: Female
  Weight: 57.59 kg

DRUGS (4)
  1. ORENCIA [Suspect]
     Indication: RHEUMATOID ARTHRITIS
     Route: 042
  2. IMITREX [Concomitant]
     Dosage: SHOT
  3. TREXIMET [Concomitant]
     Dosage: PILL
  4. ZOMIG [Concomitant]
     Dosage: SPRAY

REACTIONS (1)
  - Migraine [Unknown]
